FAERS Safety Report 20022636 (Version 1)
Quarter: 2021Q4

REPORT INFORMATION
  Report Type: Other
  Country: SG (occurrence: None)
  Receive Date: 20211102
  Receipt Date: 20211102
  Transmission Date: 20220303
  Serious: Yes (Other)
  Sender: FDA-Public Use
  Company Number: SG-ROCHE-2944392

PATIENT

DRUGS (3)
  1. ATEZOLIZUMAB [Suspect]
     Active Substance: ATEZOLIZUMAB
     Indication: Breast cancer
     Route: 065
  2. PERTUZUMAB [Suspect]
     Active Substance: PERTUZUMAB
     Indication: Breast cancer
     Route: 065
  3. TRASTUZUMAB [Suspect]
     Active Substance: TRASTUZUMAB
     Indication: Breast cancer
     Route: 065

REACTIONS (14)
  - Pericarditis [Unknown]
  - Cardiac failure [Unknown]
  - Granulocytopenia [Unknown]
  - Hepatitis [Unknown]
  - Encephalitis [Unknown]
  - Guillain-Barre syndrome [Unknown]
  - Myasthenic syndrome [Unknown]
  - Uveitis [Unknown]
  - Hypophysitis [Unknown]
  - Thyroiditis [Unknown]
  - Thrombocytopenia [Unknown]
  - Pneumonitis [Unknown]
  - Transaminases increased [Unknown]
  - Colitis [Unknown]
